FAERS Safety Report 9735273 (Version 2)
Quarter: 2013Q4

REPORT INFORMATION
  Report Type: Spontaneous
  Country: BR (occurrence: BR)
  Receive Date: 20131206
  Receipt Date: 20131223
  Transmission Date: 20140711
  Serious: Yes (Other)
  Sender: FDA-Public Use
  Company Number: BR-SA-2013SA123841

PATIENT
  Age: 40 Year
  Sex: Female

DRUGS (26)
  1. ARAVA [Suspect]
     Indication: RHEUMATOID ARTHRITIS
     Route: 048
     Dates: start: 20130226, end: 20130328
  2. BLINDED THERAPY [Suspect]
     Indication: RHEUMATOID ARTHRITIS
     Dosage: FREQUENCY- 1 IN 2 WEEK
     Route: 058
     Dates: start: 20111108
  3. TOCILIZUMAB [Suspect]
     Indication: RHEUMATOID ARTHRITIS
     Dosage: FREQUENCY- 1 IN 2 WEEK
     Route: 058
     Dates: start: 20120131
  4. METHOTREXATE [Suspect]
     Indication: RHEUMATOID ARTHRITIS
     Route: 048
     Dates: start: 2008, end: 2010
  5. METHOTREXATE [Suspect]
     Indication: RHEUMATOID ARTHRITIS
     Route: 058
     Dates: start: 201108, end: 201109
  6. KETOCONAZOLE [Suspect]
     Indication: PRODUCT USED FOR UNKNOWN INDICATION
     Route: 048
     Dates: start: 20130322
  7. AMOXICILLIN [Suspect]
     Indication: PRODUCT USED FOR UNKNOWN INDICATION
     Route: 048
  8. CLARITHROMYCIN [Suspect]
     Indication: PRODUCT USED FOR UNKNOWN INDICATION
     Route: 065
  9. RIVOTRIL [Concomitant]
     Route: 048
     Dates: start: 20120522
  10. CIPROFLOXACIN [Concomitant]
     Route: 048
     Dates: start: 20120510
  11. MELOXICAM [Concomitant]
     Indication: RHEUMATOID ARTHRITIS
     Route: 048
     Dates: start: 2005, end: 2008
  12. HYDROXYCHLOROQUINE [Concomitant]
     Indication: RHEUMATOID ARTHRITIS
     Route: 048
     Dates: start: 2010, end: 2011
  13. DIPYRONE [Concomitant]
     Route: 048
     Dates: start: 201108
  14. CAFFEINE [Concomitant]
     Route: 048
     Dates: start: 201108
  15. ORPHENADRINE CITRATE [Concomitant]
     Route: 048
     Dates: start: 201108
  16. AZITHROMYCIN [Concomitant]
     Route: 048
     Dates: start: 20120330
  17. OMEPRAZOLE [Concomitant]
     Route: 048
     Dates: start: 20120815
  18. OMEPRAZOLE [Concomitant]
     Route: 048
     Dates: start: 20130312
  19. OMEPRAZOLE [Concomitant]
     Route: 048
     Dates: start: 2005, end: 20111205
  20. OMEPRAZOLE [Concomitant]
     Route: 048
     Dates: start: 20111206, end: 20120424
  21. PREDNISONE [Concomitant]
     Route: 048
     Dates: start: 20130226
  22. PREDNISONE [Concomitant]
     Route: 048
     Dates: start: 2005, end: 20121111
  23. LEFLUNOMIDE [Concomitant]
     Route: 048
     Dates: start: 201103, end: 20111201
  24. LEFLUNOMIDE [Concomitant]
     Route: 048
     Dates: start: 20111201, end: 20120130
  25. DEXCHLORPHENIRAMINE [Concomitant]
     Route: 048
     Dates: start: 20111124, end: 20111124
  26. DEXCHLORPHENIRAMINE [Concomitant]
     Route: 048
     Dates: start: 20111206, end: 20111206

REACTIONS (4)
  - Drug-induced liver injury [Recovered/Resolved]
  - Pruritus generalised [Recovered/Resolved]
  - Aspartate aminotransferase increased [Recovered/Resolved]
  - Alanine aminotransferase increased [Recovered/Resolved]
